FAERS Safety Report 11899021 (Version 2)
Quarter: 2019Q1

REPORT INFORMATION
  Report Type: Spontaneous
  Country: US (occurrence: US)
  Receive Date: 20160108
  Receipt Date: 20190314
  Transmission Date: 20190417
  Serious: No
  Sender: FDA-Public Use
  Company Number: US-PFIZER INC-2016004022

PATIENT
  Age: 53 Year
  Sex: Male

DRUGS (3)
  1. SARAVANTA [Suspect]
     Active Substance: LOSARTAN POTASSIUM
     Dosage: UNK
  2. ZITHROMAX [Suspect]
     Active Substance: AZITHROMYCIN DIHYDRATE
     Dosage: UNK
  3. SEREVENT DISKUS [Suspect]
     Active Substance: SALMETEROL XINAFOATE
     Dosage: UNK

REACTIONS (1)
  - Drug hypersensitivity [Unknown]
